FAERS Safety Report 18485562 (Version 1)
Quarter: 2020Q4

REPORT INFORMATION
  Report Type: Spontaneous
  Country: TW (occurrence: TW)
  Receive Date: 20201110
  Receipt Date: 20201110
  Transmission Date: 20210114
  Serious: Yes (Other)
  Sender: FDA-Public Use
  Company Number: TW-BAYER-2020-237370

PATIENT
  Age: 51 Year
  Sex: Male

DRUGS (3)
  1. NEXAVAR [Suspect]
     Active Substance: SORAFENIB
     Indication: VENTRICULAR TACHYCARDIA
  2. NEXAVAR [Suspect]
     Active Substance: SORAFENIB
     Indication: HEPATOCELLULAR CARCINOMA
     Dosage: UNK
     Route: 048
     Dates: start: 201912, end: 20200820
  3. STIVARGA [Suspect]
     Active Substance: REGORAFENIB
     Dosage: UNK
     Dates: start: 20200821

REACTIONS (3)
  - Metastases to lymph nodes [None]
  - Hepatocellular carcinoma [None]
  - Metastases to mouth [None]

NARRATIVE: CASE EVENT DATE: 202007
